FAERS Safety Report 7911482-2 (Version None)
Quarter: 2011Q4

REPORT INFORMATION
  Report Type: 
  Country: None (occurrence: None)
  Receive Date: 20111114
  Receipt Date: 20111104
  Transmission Date: 20120403
  Serious: Yes (Hospitalization)
  Sender: FDA-Public Use
  Company Number: BR-US-EMD SERONO, INC.-7049434

PATIENT
  Sex: Female

DRUGS (4)
  1. RETEMIC [Concomitant]
  2. REBIF [Suspect]
     Indication: RELAPSING-REMITTING MULTIPLE SCLEROSIS
     Dates: start: 20090801
  3. PRIMERA [Concomitant]
  4. FLUOXETINE HCL [Concomitant]

REACTIONS (3)
  - EPILEPSY [None]
  - URINARY TRACT INFECTION [None]
  - HYDROCEPHALUS [None]
